FAERS Safety Report 6313162-6 (Version None)
Quarter: 2009Q3

REPORT INFORMATION
  Report Type: 
  Country: None (occurrence: None)
  Receive Date: 20090818
  Receipt Date: 20090807
  Transmission Date: 20100115
  Serious: Yes (Other)
  Sender: FDA-Public Use
  Company Number: US-BAXTER-2009BH012305

PATIENT
  Sex: Male
  Weight: 93 kg

DRUGS (4)
  1. IGIV, UNSPECIFIED PRODUCT [Suspect]
     Indication: MULTIFOCAL MOTOR NEUROPATHY
     Route: 042
  2. IGIV, UNSPECIFIED PRODUCT [Suspect]
     Indication: OFF LABEL USE
     Route: 042
  3. DIPHENHYDRAMINE HYDROCHLORIDE [Concomitant]
     Indication: PREMEDICATION
     Route: 048
  4. TYLENOL (CAPLET) [Concomitant]
     Indication: PREMEDICATION
     Route: 048

REACTIONS (5)
  - HEADACHE [None]
  - MALAISE [None]
  - MIGRAINE [None]
  - PHOTOPSIA [None]
  - TRANSIENT ISCHAEMIC ATTACK [None]
